FAERS Safety Report 5170531-8 (Version None)
Quarter: 2006Q4

REPORT INFORMATION
  Report Type: 
  Country: None (occurrence: None)
  Receive Date: 20061205
  Receipt Date: 20061120
  Transmission Date: 20070319
  Serious: Yes (Other)
  Sender: FDA-Public Use
  Company Number: 2006144143

PATIENT
  Age: 7 Year
  Sex: Male

DRUGS (5)
  1. AZITHROMYCIN [Suspect]
     Indication: PNEUMONIA MYCOPLASMAL
     Dosage: ORAL
     Route: 048
     Dates: start: 20061102, end: 20061104
  2. PROCATEROL HCL [Suspect]
     Indication: PNEUMONIA MYCOPLASMAL
     Dosage: ORAL
     Route: 048
     Dates: start: 20061102, end: 20061104
  3. MUCOSAL (ACETYLCYSTEINE) [Suspect]
     Indication: PNEUMONIA MYCOPLASMAL
     Dosage: ORAL
     Route: 048
     Dates: start: 20061102, end: 20061104
  4. ASVERIN (TIPEPIDINE HIBENZATE) [Suspect]
     Indication: PNEUMONIA MYCOPLASMAL
     Dosage: ORAL
     Route: 048
     Dates: start: 20061102, end: 20061104
  5. PERIACTIN [Concomitant]

REACTIONS (1)
  - RHABDOMYOLYSIS [None]
